FAERS Safety Report 5621813-4 (Version None)
Quarter: 2008Q1

REPORT INFORMATION
  Report Type: 
  Country: None (occurrence: None)
  Receive Date: 20080211
  Receipt Date: 20080204
  Transmission Date: 20080703
  Serious: Yes (Life-Threatening, Hospitalization, Other)
  Sender: FDA-Public Use
  Company Number: PHBS2007AT13887

PATIENT
  Age: 63 Year
  Sex: Female

DRUGS (1)
  1. ZOMETA [Suspect]
     Indication: OSTEITIS DEFORMANS
     Dosage: 4 MG, UNK
     Route: 042
     Dates: start: 20070731

REACTIONS (6)
  - ANAEMIA [None]
  - ATRIAL FIBRILLATION [None]
  - BLOOD IMMUNOGLOBULIN E INCREASED [None]
  - METASTATIC GASTRIC CANCER [None]
  - PERICARDIAL EFFUSION [None]
  - POLYSEROSITIS [None]
